FAERS Safety Report 25045262 (Version 3)
Quarter: 2025Q2

REPORT INFORMATION
  Report Type: Report from Study
  Country: US (occurrence: US)
  Receive Date: 20250306
  Receipt Date: 20250509
  Transmission Date: 20250716
  Serious: No
  Sender: ACADIA PHARMACEUTICALS
  Company Number: US-ACADIA PHARMACEUTICALS INC.-ACA-2025-TRF-001987

PATIENT

DRUGS (3)
  1. DAYBUE [Suspect]
     Active Substance: TROFINETIDE
     Indication: Rett syndrome
     Dosage: 25 MILLILITER, BID
     Route: 048
  2. DAYBUE [Suspect]
     Active Substance: TROFINETIDE
     Route: 048
  3. DAYBUE [Suspect]
     Active Substance: TROFINETIDE
     Dosage: 15 MILLILITER, BID
     Route: 048

REACTIONS (10)
  - Regurgitation [Recovered/Resolved]
  - Hypersomnia [Recovered/Resolved]
  - Drug intolerance [Recovered/Resolved]
  - Influenza like illness [Recovering/Resolving]
  - Regurgitation [Recovered/Resolved]
  - Regurgitation [Not Recovered/Not Resolved]
  - Somnolence [Recovered/Resolved]
  - Irritability [Recovered/Resolved]
  - Intentional dose omission [Recovered/Resolved]
  - Underdose [Recovered/Resolved]
